FAERS Safety Report 7479429-3 (Version None)
Quarter: 2011Q2

REPORT INFORMATION
  Report Type: 
  Country: None (occurrence: None)
  Receive Date: 20110513
  Receipt Date: 20110505
  Transmission Date: 20111010
  Serious: Yes (Hospitalization)
  Sender: FDA-Public Use
  Company Number: US-GENZYME-CLOF-1001603

PATIENT
  Age: 24 Year
  Sex: Female

DRUGS (3)
  1. CLOLAR [Suspect]
     Indication: ACUTE MYELOID LEUKAEMIA RECURRENT
     Dosage: UNK QD X 5
     Route: 065
     Dates: start: 20110423, end: 20110427
  2. CYCLOPHOSPHAMIDE [Suspect]
     Indication: ACUTE MYELOID LEUKAEMIA RECURRENT
     Dosage: UNK, QD X 5 DAYS
     Route: 065
     Dates: start: 20110423, end: 20110427
  3. ETOPOSIDE [Suspect]
     Indication: ACUTE MYELOID LEUKAEMIA RECURRENT
     Dosage: UNK, QD X 5 DAYS
     Route: 065
     Dates: start: 20110423, end: 20110427

REACTIONS (3)
  - VOMITING [None]
  - TREMOR [None]
  - NAUSEA [None]
